FAERS Safety Report 17098406 (Version 6)
Quarter: 2020Q1

REPORT INFORMATION
  Report Type: Spontaneous
  Country: US (occurrence: US)
  Receive Date: 20191202
  Receipt Date: 20200130
  Transmission Date: 20200409
  Serious: No
  Sender: FDA-Public Use
  Company Number: US-PFIZER INC-2019510309

PATIENT
  Age: 85 Year
  Sex: Female
  Weight: 63.49 kg

DRUGS (5)
  1. WARFARIN [Concomitant]
     Active Substance: WARFARIN
     Dosage: TOOK HALF A ONE EVERY DAY, IT SOMETIMES CHANGED DUE TO HAVING HER LEVELS CHECKED EVERY MONTH
     Dates: start: 201812
  2. HYDROCHLOROTHIAZIDE. [Concomitant]
     Active Substance: HYDROCHLOROTHIAZIDE
     Indication: BLOOD PRESSURE ABNORMAL
     Dosage: 12.5 MG, DAILY
  3. GLUCOSAMINE SULFATE [Concomitant]
     Active Substance: GLUCOSAMINE SULFATE
     Dosage: 1 DF, DAILY(GLUCOSAMINE SULFATE 750)
  4. EUCRISA [Suspect]
     Active Substance: CRISABOROLE
     Indication: VULVOVAGINAL DISCOMFORT
     Dosage: UNK, 2X/DAY
     Dates: start: 20190730, end: 201908
  5. WARFARIN [Concomitant]
     Active Substance: WARFARIN
     Dosage: 5 MG, DAILY
     Dates: start: 201812

REACTIONS (8)
  - Skin haemorrhage [Recovered/Resolved]
  - Rash [Recovered/Resolved]
  - Skin weeping [Recovered/Resolved]
  - Off label use [Recovered/Resolved]
  - Skin lesion [Recovered/Resolved]
  - Skin wound [Recovered/Resolved]
  - Erythema [Recovered/Resolved]
  - Product use in unapproved indication [Recovered/Resolved]

NARRATIVE: CASE EVENT DATE: 20190730
